FAERS Safety Report 19080759 (Version 1)
Quarter: 2021Q2

REPORT INFORMATION
  Report Type: Spontaneous
  Country: US (occurrence: US)
  Receive Date: 20210401
  Receipt Date: 20210401
  Transmission Date: 20210717
  Serious: No
  Sender: FDA-Public Use
  Company Number: US-AMGEN-USASP2021047154

PATIENT

DRUGS (1)
  1. NEUPOGEN [Suspect]
     Active Substance: FILGRASTIM
     Indication: HAEMATOPOIETIC STEM CELL MOBILISATION
     Dosage: UNK, UNK, FOR 5 DAYS FOLLOWED BY BLOOD CELL COLLECTION
     Route: 065

REACTIONS (4)
  - Off label use [Unknown]
  - Hepatomegaly [Unknown]
  - Blood alkaline phosphatase increased [Unknown]
  - Liver function test increased [Unknown]
